FAERS Safety Report 5563459-2 (Version None)
Quarter: 2007Q4

REPORT INFORMATION
  Report Type: 
  Country: None (occurrence: None)
  Receive Date: 20071217
  Receipt Date: 20070725
  Transmission Date: 20080405
  Serious: Yes (Disabling, Other)
  Sender: FDA-Public Use
  Company Number: US-ASTRAZENECA-2007UW13054

PATIENT
  Age: 76 Year
  Sex: Female
  Weight: 74.5 kg

DRUGS (13)
  1. CRESTOR [Suspect]
     Indication: HYPERLIPIDAEMIA
     Route: 048
  2. LYRICA [Concomitant]
     Indication: NEUROPATHY
     Route: 048
  3. AVANDIA [Concomitant]
     Indication: DIABETES MELLITUS
     Route: 048
  4. CRESTOR [Concomitant]
  5. GLIPIZIDE [Concomitant]
  6. LISINOPRIL [Concomitant]
     Indication: HYPERTENSION
     Route: 048
  7. NEXIUM [Concomitant]
     Indication: GASTROOESOPHAGEAL REFLUX DISEASE
     Route: 048
  8. ANIMI 3 [Concomitant]
  9. FERROUS SULFATE TAB [Concomitant]
  10. METFORMIN HCL [Concomitant]
     Indication: DIABETES MELLITUS
     Route: 048
  11. HYDROCHLOROTHIAZIDE [Concomitant]
  12. WELCHOL [Concomitant]
  13. NASONEX [Concomitant]

REACTIONS (6)
  - ASTHENIA [None]
  - BLOOD CREATINE PHOSPHOKINASE INCREASED [None]
  - FATIGUE [None]
  - MYALGIA [None]
  - MYOPATHY [None]
  - RHABDOMYOLYSIS [None]
